FAERS Safety Report 8539260-4 (Version None)
Quarter: 2012Q3

REPORT INFORMATION
  Report Type: 
  Country: None (occurrence: None)
  Receive Date: 20120726
  Receipt Date: 20120718
  Transmission Date: 20120928
  Serious: Yes (Death, Hospitalization)
  Sender: FDA-Public Use
  Company Number: JP-GILEAD-2012-0055803

PATIENT
  Sex: Female

DRUGS (9)
  1. REVATIO [Concomitant]
     Indication: PULMONARY ARTERIAL HYPERTENSION
     Dosage: 40MCG PER DAY
     Route: 048
     Dates: start: 20120428
  2. LANSOPRAZOLE [Concomitant]
     Dosage: 15MG PER DAY
     Route: 048
  3. ENALAPRIL MALEATE [Concomitant]
     Dosage: 1.25MG PER DAY
     Route: 048
  4. CARVEDILOL [Concomitant]
     Indication: HYPERTENSION
     Dosage: 1.25MG PER DAY
     Route: 048
  5. LANSOPRAZOLE [Concomitant]
     Indication: GASTROOESOPHAGEAL REFLUX DISEASE
     Dosage: 15 MG, BID
     Route: 048
  6. LANSOPRAZOLE [Concomitant]
     Dosage: 15MG PER DAY
     Route: 048
  7. CARVEDILOL [Concomitant]
     Dosage: 1.25MG PER DAY
     Route: 048
  8. AMBRISENTAN [Suspect]
     Indication: PULMONARY ARTERIAL HYPERTENSION
     Dosage: 2.5MG PER DAY
     Route: 048
     Dates: start: 20120511, end: 20120514
  9. ENALAPRIL MALEATE [Concomitant]
     Indication: HYPERTENSION
     Dosage: 1.25MG PER DAY
     Route: 048

REACTIONS (4)
  - PYREXIA [None]
  - ANAEMIA [None]
  - URINARY TRACT INFECTION [None]
  - CIRCULATORY COLLAPSE [None]
